FAERS Safety Report 18265699 (Version 1)
Quarter: 2020Q3

REPORT INFORMATION
  Report Type: Spontaneous
  Country: US (occurrence: US)
  Receive Date: 20200915
  Receipt Date: 20200915
  Transmission Date: 20201103
  Serious: Yes (Other)
  Sender: FDA-Public Use
  Company Number: US-STRIDES ARCOLAB LIMITED-2020SP007944

PATIENT
  Age: 68 Year
  Sex: Female

DRUGS (2)
  1. TACROLIMUS. [Suspect]
     Active Substance: TACROLIMUS
     Indication: RENAL AND LIVER TRANSPLANT
     Dosage: UNK
     Route: 065
  2. BASILIXIMAB [Concomitant]
     Active Substance: BASILIXIMAB
     Indication: BREAST CANCER
     Dosage: UNK, INDUCTION CHEMOTHERAPY
     Route: 065

REACTIONS (2)
  - Seizure [Unknown]
  - Posterior reversible encephalopathy syndrome [Unknown]
